FAERS Safety Report 11857467 (Version 1)
Quarter: 2015Q4

REPORT INFORMATION
  Report Type: Spontaneous
  Country: US (occurrence: US)
  Receive Date: 20151221
  Receipt Date: 20151221
  Transmission Date: 20160305
  Serious: No
  Sender: FDA-Public Use
  Company Number: GXBR2015US002310

PATIENT
  Sex: Female
  Weight: 90.7 kg

DRUGS (1)
  1. LEVOFLOXACIN. [Suspect]
     Active Substance: LEVOFLOXACIN
     Indication: PNEUMONIA
     Dosage: 750 MG, QD
     Route: 048
     Dates: start: 20150908, end: 20150915

REACTIONS (1)
  - Pain in extremity [Not Recovered/Not Resolved]
